FAERS Safety Report 21867023 (Version 1)
Quarter: 2023Q1

REPORT INFORMATION
  Report Type: Spontaneous
  Country: IR (occurrence: IR)
  Receive Date: 20230116
  Receipt Date: 20230116
  Transmission Date: 20230418
  Serious: Yes (Death, Other)
  Sender: FDA-Public Use
  Company Number: IR-AMGEN-IRNSP2023005692

PATIENT
  Age: 57 Year
  Sex: Male

DRUGS (4)
  1. PROLIA [Suspect]
     Active Substance: DENOSUMAB
     Indication: Hypercalcaemia
     Dosage: UNK
     Route: 065
  2. SALINE [Concomitant]
     Active Substance: SODIUM CHLORIDE
  3. FUROSEMIDE [Concomitant]
     Active Substance: FUROSEMIDE
  4. CALCITONIN [Concomitant]
     Active Substance: CALCITONIN

REACTIONS (7)
  - Death [Fatal]
  - Cholestasis [Unknown]
  - Primary amyloidosis [Unknown]
  - Hepatic amyloidosis [Unknown]
  - Hepatic failure [Unknown]
  - Proteinuria [Unknown]
  - Off label use [Unknown]
